FAERS Safety Report 4659333-6 (Version None)
Quarter: 2005Q2

REPORT INFORMATION
  Report Type: 
  Country: None (occurrence: None)
  Receive Date: 20050510
  Receipt Date: 20050427
  Transmission Date: 20051028
  Serious: Yes (Disabling)
  Sender: FDA-Public Use
  Company Number: 05P-167-0298912-00

PATIENT
  Age: 76 Year
  Sex: Female
  Weight: 64 kg

DRUGS (8)
  1. HUMIRA [Suspect]
     Indication: RHEUMATOID ARTHRITIS
     Dosage: 40 MG, 1 IN 2 WK, SUBCUTANEOUS
     Route: 058
     Dates: start: 20041015, end: 20050106
  2. PREDNISOLONE [Concomitant]
  3. BENDROFLUMETHIAZIDE [Concomitant]
  4. CELECOXIB [Concomitant]
  5. LANSOPRAZOLE [Concomitant]
  6. ACETAMINOPHEN W/ CODEINE [Concomitant]
  7. ATENOLOL [Concomitant]
  8. ALENDRONATE SODIUM [Concomitant]

REACTIONS (3)
  - ALVEOLITIS FIBROSING [None]
  - CONDITION AGGRAVATED [None]
  - DYSPNOEA [None]
